FAERS Safety Report 21981436 (Version 5)
Quarter: 2023Q2

REPORT INFORMATION
  Report Type: Report from Study
  Country: US (occurrence: US)
  Receive Date: 20230211
  Receipt Date: 20230623
  Transmission Date: 20230721
  Serious: Yes (Other)
  Sender: FDA-Public Use
  Company Number: US-002147023-NVSC2023US028128

PATIENT
  Sex: Female

DRUGS (1)
  1. KESIMPTA [Suspect]
     Active Substance: OFATUMUMAB
     Indication: Multiple sclerosis
     Dosage: 20 MG, QW
     Route: 058
     Dates: start: 20230105

REACTIONS (15)
  - Atrial fibrillation [Unknown]
  - Confusional state [Unknown]
  - Emotional disorder [Unknown]
  - Tooth disorder [Unknown]
  - Decreased appetite [Unknown]
  - Taste disorder [Unknown]
  - Visual impairment [Unknown]
  - Pain in jaw [Not Recovered/Not Resolved]
  - Urinary incontinence [Unknown]
  - Balance disorder [Unknown]
  - Pain [Unknown]
  - Nausea [Unknown]
  - COVID-19 [Unknown]
  - Cerebral disorder [Unknown]
  - Feeling abnormal [Unknown]
